FAERS Safety Report 6766974-9 (Version None)
Quarter: 2010Q2

REPORT INFORMATION
  Report Type: 
  Country: None (occurrence: None)
  Receive Date: 20100611
  Receipt Date: 20100604
  Transmission Date: 20101027
  Serious: Yes (Other)
  Sender: FDA-Public Use
  Company Number: US-ROCHE-686266

PATIENT
  Sex: Male

DRUGS (3)
  1. MYCOPHENOLATE MOFETIL [Suspect]
     Route: 048
     Dates: start: 20080321
  2. TACROLIMUS [Suspect]
     Route: 048
     Dates: start: 20080320
  3. TACROLIMUS [Suspect]
     Dosage: DOSE DECREASED
     Route: 048

REACTIONS (1)
  - PROSTATE CANCER [None]
